FAERS Safety Report 10201566 (Version 1)
Quarter: 2014Q2

REPORT INFORMATION
  Report Type: Spontaneous
  Country: US (occurrence: US)
  Receive Date: 20140528
  Receipt Date: 20140528
  Transmission Date: 20141212
  Serious: No
  Sender: FDA-Public Use
  Company Number: US-BAYER-2014-079206

PATIENT
  Age: 68 Year
  Sex: Male

DRUGS (1)
  1. ALEVE CAPLET [Suspect]
     Indication: ARTHRALGIA
     Dosage: 3 DF, QD
     Route: 048

REACTIONS (2)
  - Incorrect drug administration duration [None]
  - Incorrect dose administered [None]
